FAERS Safety Report 7801572-7 (Version None)
Quarter: 2011Q4

REPORT INFORMATION
  Report Type: 
  Country: None (occurrence: None)
  Receive Date: 20111006
  Receipt Date: 20111006
  Transmission Date: 20120403
  Serious: Yes (Hospitalization)
  Sender: FDA-Public Use
  Company Number: None

PATIENT
  Age: 75 Year
  Sex: Male

DRUGS (12)
  1. VIT D [Concomitant]
  2. CYANOCOBALAMIN [Concomitant]
  3. NORCO [Concomitant]
  4. LACTULOSE [Concomitant]
  5. SINEMET [Concomitant]
  6. SELEGILINE [Concomitant]
  7. CELEBREX [Concomitant]
  8. BENEFIBER [Concomitant]
  9. SIMVASTAIN [Concomitant]
  10. MIRALAX [Concomitant]
  11. COUMADIN [Suspect]
     Indication: PULMONARY EMBOLISM
     Dosage: 7.5MG DAILY PO RECENT
     Route: 048
  12. LOVENOX [Suspect]
     Indication: PULMONARY EMBOLISM
     Dosage: 70MG BID SQ RECENT
     Route: 058

REACTIONS (4)
  - ANAEMIA [None]
  - HAEMATOMA [None]
  - HAEMOTHORAX [None]
  - ATELECTASIS [None]
